FAERS Safety Report 20206418 (Version 1)
Quarter: 2021Q4

REPORT INFORMATION
  Report Type: Spontaneous
  Country: US (occurrence: None)
  Receive Date: 20211218
  Receipt Date: 20211218
  Transmission Date: 20220304
  Serious: Yes (Hospitalization)
  Sender: FDA-Public Use
  Company Number: None

PATIENT
  Age: 56 Year
  Sex: Female
  Weight: 74.7 kg

DRUGS (1)
  1. TRULICITY [Suspect]
     Active Substance: DULAGLUTIDE
     Indication: Diabetes mellitus
     Dosage: OTHER QUANTITY : 4 INJECTION(S);?OTHER FREQUENCY : ONES A WEEK;?
     Route: 030

REACTIONS (4)
  - Nausea [None]
  - Vomiting [None]
  - General physical health deterioration [None]
  - Impaired gastric emptying [None]

NARRATIVE: CASE EVENT DATE: 20211210
